FAERS Safety Report 6399963-7 (Version None)
Quarter: 2009Q4

REPORT INFORMATION
  Report Type: 
  Country: None (occurrence: None)
  Receive Date: 20091014
  Receipt Date: 20091007
  Transmission Date: 20100525
  Serious: Yes (Death)
  Sender: FDA-Public Use
  Company Number: US-GILEAD-2009-0023948

PATIENT
  Sex: Female
  Weight: 77.634 kg

DRUGS (13)
  1. LETAIRIS [Suspect]
     Indication: PULMONARY ARTERIAL HYPERTENSION
     Route: 048
     Dates: start: 20090715
  2. WARFARIN SODIUM [Concomitant]
  3. LASIX [Concomitant]
  4. XALATAN [Concomitant]
  5. MULTI-VITAMIN [Concomitant]
  6. TYLENOL (CAPLET) [Concomitant]
  7. LOVASTATIN [Concomitant]
  8. AMIODARONE HCL [Concomitant]
  9. POTASSIUM CHLORIDE [Concomitant]
  10. LEXAPRO [Concomitant]
  11. COMBIVENT [Concomitant]
  12. ASPIRIN [Concomitant]
  13. PROAIR HFA [Concomitant]

REACTIONS (2)
  - DEATH [None]
  - DYSPNOEA [None]
